FAERS Safety Report 7867936-0 (Version None)
Quarter: 2011Q4

REPORT INFORMATION
  Report Type: 
  Country: None (occurrence: None)
  Receive Date: 20111028
  Receipt Date: 20111020
  Transmission Date: 20120403
  Serious: Yes (Hospitalization, Other)
  Sender: FDA-Public Use
  Company Number: PHEH2008US03989

PATIENT
  Sex: Male
  Weight: 99.229 kg

DRUGS (39)
  1. RADIATION THERAPY [Concomitant]
     Dosage: UNK
  2. ALKERAN [Concomitant]
  3. ZOCOR [Concomitant]
     Dosage: 20 MG, QD
     Route: 048
  4. PEPCID [Concomitant]
     Dosage: 20 MG, BID
     Route: 048
  5. ASPIRIN [Concomitant]
     Dosage: 325 MG, QD
     Route: 048
  6. NIFEREX (POLYSACCHARIDE-IRON COMPLEX) [Concomitant]
     Dosage: 150 MG, BID
     Route: 048
  7. AMIODARONE HCL [Concomitant]
     Dosage: 200 MG, BID
     Route: 048
  8. CELEXA [Concomitant]
     Dosage: 20 MG, QD
     Route: 048
  9. DECADRON [Concomitant]
  10. OMNICEF [Concomitant]
     Dosage: 300 MG, UNK
  11. DEXAMETHASONE [Concomitant]
  12. ZOMETA [Suspect]
     Dosage: 4 MG, UNK
     Dates: start: 20040621
  13. CHEMOTHERAPEUTICS NOS [Concomitant]
  14. COLACE [Concomitant]
     Dosage: 100 MG, BID
     Route: 048
  15. LISINOPRIL [Concomitant]
     Dosage: 10 MG, QD
     Route: 048
  16. TYLENOL-500 [Concomitant]
     Dosage: 1000 MG, PRN
     Route: 048
  17. FERREX [Concomitant]
  18. CYTOXAN [Concomitant]
  19. LASIX [Concomitant]
     Dosage: 20 MG, BID
     Route: 048
  20. PERIDEX [Concomitant]
  21. VELCADE [Concomitant]
  22. TRAMADOL HCL [Concomitant]
  23. CEPHALEXIN [Concomitant]
  24. SIMVASTATIN [Concomitant]
     Dosage: 10 MG, QD
     Route: 048
  25. REVLIMID [Concomitant]
  26. CARVEDILOL [Concomitant]
     Dosage: 6.25 MG, BID
     Route: 048
  27. CYCLOPHOSPHAMIDE [Concomitant]
  28. KETOROLAC TROMETHAMINE [Concomitant]
  29. FINASTERIDE [Concomitant]
     Dosage: 5 MG, UNK
  30. AREDIA [Suspect]
  31. MAALOX                                  /USA/ [Concomitant]
     Dosage: 30 ML, PRN
     Route: 048
  32. AMOXICILLIN [Concomitant]
     Dosage: 500 MG, UNK
  33. PREDNISONE [Concomitant]
  34. MILK OF MAGNESIA TAB [Concomitant]
     Dosage: 30 ML, PRN
     Route: 048
  35. CYTOXAN [Concomitant]
  36. THALIDOMIDE [Concomitant]
  37. DARVOCET-N 50 [Concomitant]
     Dosage: 100 MG, PRN
     Route: 048
  38. ZITHROMAX [Concomitant]
  39. CENTRUM SILVER [Concomitant]

REACTIONS (74)
  - BONE DISORDER [None]
  - PRODUCTIVE COUGH [None]
  - CARDIAC FAILURE CONGESTIVE [None]
  - EPISTAXIS [None]
  - CARDIAC DISORDER [None]
  - DUPUYTREN'S CONTRACTURE [None]
  - FATIGUE [None]
  - DIVERTICULUM [None]
  - ANXIETY [None]
  - ROTATOR CUFF SYNDROME [None]
  - MUSCULOSKELETAL DISCOMFORT [None]
  - NEUROPATHY PERIPHERAL [None]
  - CARDIAC VALVE DISEASE [None]
  - DYSPHAGIA [None]
  - AMNESIA [None]
  - VISUAL IMPAIRMENT [None]
  - GINGIVAL DISORDER [None]
  - DIZZINESS [None]
  - UPPER RESPIRATORY TRACT INFECTION [None]
  - BLISTER [None]
  - PAIN [None]
  - INJURY [None]
  - VENTRICULAR DYSFUNCTION [None]
  - HYPOAESTHESIA [None]
  - HAEMOGLOBIN DECREASED [None]
  - VIITH NERVE PARALYSIS [None]
  - GASTROOESOPHAGEAL REFLUX DISEASE [None]
  - EMOTIONAL DISTRESS [None]
  - NOCTURIA [None]
  - RESPIRATORY FAILURE [None]
  - DYSPNOEA [None]
  - CYST [None]
  - EATING DISORDER [None]
  - ORTHOPNOEA [None]
  - POOR PERSONAL HYGIENE [None]
  - DENTAL PLAQUE [None]
  - PAIN IN JAW [None]
  - ASTHENIA [None]
  - OSTEONECROSIS OF JAW [None]
  - SCAR [None]
  - CORONARY ARTERY DISEASE [None]
  - ANAEMIA [None]
  - WALKING AID USER [None]
  - ATRIAL FIBRILLATION [None]
  - OEDEMA [None]
  - SINUSITIS [None]
  - ENTEROCOCCAL INFECTION [None]
  - CONSTIPATION [None]
  - ORAL PAIN [None]
  - DEPRESSION [None]
  - PERIORBITAL HAEMATOMA [None]
  - PANCYTOPENIA [None]
  - URINE ABNORMALITY [None]
  - WOUND INFECTION [None]
  - HYPOTENSION [None]
  - INFECTION [None]
  - PHYSICAL DISABILITY [None]
  - DYSURIA [None]
  - PARANASAL SINUS HYPERSECRETION [None]
  - FALL [None]
  - DENTAL CARIES [None]
  - HAEMATURIA [None]
  - PARAESTHESIA [None]
  - MITRAL VALVE INCOMPETENCE [None]
  - HERPES ZOSTER [None]
  - BENIGN PROSTATIC HYPERPLASIA [None]
  - AORTIC STENOSIS [None]
  - LOSS OF CONSCIOUSNESS [None]
  - HYPONATRAEMIA [None]
  - BLOOD PRESSURE DIASTOLIC DECREASED [None]
  - HEADACHE [None]
  - SYNCOPE [None]
  - MOUTH HAEMORRHAGE [None]
  - TRICUSPID VALVE INCOMPETENCE [None]
